FAERS Safety Report 9862783 (Version 3)
Quarter: 2014Q1

REPORT INFORMATION
  Report Type: Spontaneous
  Country: US (occurrence: US)
  Receive Date: 20140203
  Receipt Date: 20140221
  Transmission Date: 20141002
  Serious: No
  Sender: FDA-Public Use
  Company Number: US-009507513-1401USA013331

PATIENT
  Age: 16 Year
  Sex: 0
  Weight: 68.27 kg

DRUGS (1)
  1. NEXPLANON [Suspect]
     Dosage: UNK
     Route: 059
     Dates: start: 20140127

REACTIONS (2)
  - Device difficult to use [Unknown]
  - No adverse event [Unknown]
